FAERS Safety Report 8844505 (Version 1)
Quarter: 2012Q4

REPORT INFORMATION
  Report Type: Spontaneous
  Country: DK (occurrence: None)
  Receive Date: 20121012
  Receipt Date: 20121012
  Transmission Date: 20130627
  Serious: Yes (Hospitalization)
  Sender: FDA-Public Use
  Company Number: 2012MA011994

PATIENT
  Age: 62 Year
  Sex: Female

DRUGS (7)
  1. FLUOXETINE ORAL SOLUTION USP, 20MG/5ML (ALPHARMA) [Suspect]
     Indication: ANXIETY DEPRESSION
     Route: 048
  2. BISOPRAZOLOL [Concomitant]
  3. OMEPRAZOLE [Concomitant]
  4. LORAZEPAM [Concomitant]
  5. DEXAMETHASONE [Concomitant]
  6. LATANOPROST [Concomitant]
  7. AZOPT [Concomitant]

REACTIONS (2)
  - Confusional state [None]
  - Blood sodium decreased [None]
